FAERS Safety Report 9107176 (Version 2)
Quarter: 2013Q1

REPORT INFORMATION
  Report Type: Spontaneous
  Country: DE (occurrence: DE)
  Receive Date: 20130221
  Receipt Date: 20130307
  Transmission Date: 20140127
  Serious: Yes (Other)
  Sender: FDA-Public Use
  Company Number: DE-JNJFOC-20130210510

PATIENT
  Age: 33 Year
  Sex: Male
  Weight: 87 kg

DRUGS (2)
  1. REGAINE MAENNER SCHAUM [Suspect]
     Route: 061
  2. REGAINE MAENNER SCHAUM [Suspect]
     Indication: PRODUCT USED FOR UNKNOWN INDICATION
     Route: 061

REACTIONS (2)
  - Arrhythmia [Recovered/Resolved]
  - Chest discomfort [Recovered/Resolved]
